FAERS Safety Report 5071234-0 (Version None)
Quarter: 2006Q3

REPORT INFORMATION
  Report Type: 
  Country: None (occurrence: None)
  Receive Date: 20060714
  Receipt Date: 20060426
  Transmission Date: 20061208
  Serious: No
  Sender: FDA-Public Use
  Company Number: 2006SP001848

PATIENT
  Age: 69 Year
  Sex: Female
  Weight: 90.7194 kg

DRUGS (26)
  1. LUNESTA [Suspect]
     Indication: INSOMNIA
     Dosage: 2 MG; HS; ORAL
     Route: 048
     Dates: start: 20060425, end: 20060427
  2. POTASSIUM CHLORIDE [Concomitant]
  3. LASIX [Concomitant]
  4. NEXIUM [Concomitant]
  5. ATROVENT [Concomitant]
  6. NASACORT AQ [Concomitant]
  7. ADVAIR DISKUS 100/50 [Concomitant]
  8. ALBUTEROL [Concomitant]
  9. SINGULAIR [Concomitant]
  10. NITRO-DUR [Concomitant]
  11. MONOPRIL [Concomitant]
  12. PLAVIX [Concomitant]
  13. ALLOPURINOL [Concomitant]
  14. SIMVASTATIN [Concomitant]
  15. AMITRIPTYLINE HCL [Concomitant]
  16. DURAGESIC-100 [Concomitant]
  17. MS CONTIN [Concomitant]
  18. ULTRAM [Concomitant]
  19. LEVOXYL [Concomitant]
  20. ASPIRIN [Concomitant]
  21. CALCIUM CARBONATE [Concomitant]
  22. MULTIVITAMIN [Concomitant]
  23. MIRALAX [Concomitant]
  24. COLACE [Concomitant]
  25. DARVOCET [Concomitant]
  26. TYLENOL [Concomitant]

REACTIONS (3)
  - DYSGEUSIA [None]
  - INITIAL INSOMNIA [None]
  - NAUSEA [None]
